FAERS Safety Report 9386285 (Version 4)
Quarter: 2014Q4

REPORT INFORMATION
  Report Type: Report from Study
  Country: FR (occurrence: FR)
  Receive Date: 20130708
  Receipt Date: 20141117
  Transmission Date: 20150529
  Serious: Yes (Death, Hospitalization)
  Sender: FDA-Public Use
  Company Number: FR-ROCHE-1245275

PATIENT
  Age: 80 Year
  Sex: Male

DRUGS (5)
  1. METOCLOPRAMIDE. [Concomitant]
     Active Substance: METOCLOPRAMIDE
     Route: 065
     Dates: start: 20130130, end: 20130203
  2. TAZOBACTAM [Concomitant]
     Active Substance: TAZOBACTAM
     Route: 065
     Dates: start: 20130130
  3. RANIBIZUMAB [Suspect]
     Active Substance: RANIBIZUMAB
     Route: 050
     Dates: start: 20130116
  4. RANIBIZUMAB [Suspect]
     Active Substance: RANIBIZUMAB
     Indication: AGE-RELATED MACULAR DEGENERATION
     Route: 050
     Dates: start: 20120222
  5. ONDANSETRON [Concomitant]
     Active Substance: ONDANSETRON
     Route: 065
     Dates: start: 20130130, end: 20130130

REACTIONS (4)
  - Myocardial ischaemia [Fatal]
  - Atrial fibrillation [Unknown]
  - Vomiting [Recovered/Resolved]
  - Intestinal infarction [Fatal]

NARRATIVE: CASE EVENT DATE: 20120513
